FAERS Safety Report 8984160 (Version 2)
Quarter: 2013Q1

REPORT INFORMATION
  Report Type: Spontaneous
  Country: US (occurrence: None)
  Receive Date: 20121213
  Receipt Date: 20130222
  Transmission Date: 20140127
  Serious: Yes (Other)
  Sender: FDA-Public Use
  Company Number: CRC-12-618

PATIENT
  Age: 41 Year
  Sex: Male
  Weight: 101.61 kg

DRUGS (2)
  1. LETROZOLE [Suspect]
     Indication: HYPOGONADISM
     Route: 048
     Dates: start: 201204, end: 201211
  2. LEVOTHYROXINE (SYNTHROID) [Concomitant]

REACTIONS (1)
  - Rhabdomyolysis [None]
